FAERS Safety Report 7991592-4 (Version None)
Quarter: 2011Q4

REPORT INFORMATION
  Report Type: 
  Country: None (occurrence: None)
  Receive Date: 20111219
  Receipt Date: 20110914
  Transmission Date: 20120403
  Serious: No
  Sender: FDA-Public Use
  Company Number: US-ALLERGAN-1112206US

PATIENT
  Age: 82 Year
  Sex: Female

DRUGS (3)
  1. LUMIGAN [Suspect]
     Indication: GLAUCOMA
     Dosage: 2 GTT, QHS
     Route: 047
  2. LUMIGAN [Suspect]
     Dosage: 2 GTT, QHS
     Route: 047
  3. LUMIGAN [Suspect]
     Dosage: 2 GTT, QHS
     Route: 047

REACTIONS (1)
  - EYE IRRITATION [None]
